FAERS Safety Report 4642378-X (Version None)
Quarter: 2005Q2

REPORT INFORMATION
  Report Type: 
  Country: None (occurrence: None)
  Receive Date: 20050422
  Receipt Date: 20040802
  Transmission Date: 20051028
  Serious: Yes (Disabling)
  Sender: FDA-Public Use
  Company Number: NL-GLAXOSMITHKLINE-B0341533A

PATIENT
  Age: 56 Year
  Sex: Female

DRUGS (4)
  1. IMIGRAN [Suspect]
     Indication: MIGRAINE
     Dosage: 200MG WEEKLY
     Route: 048
     Dates: start: 19961201, end: 20040721
  2. ATENOLOLUM [Concomitant]
     Dosage: 25MG PER DAY
     Route: 048
     Dates: start: 20020214
  3. CIMETIDINE [Concomitant]
     Dosage: 400MG PER DAY
     Route: 048
     Dates: start: 20040114
  4. LIVIAL [Concomitant]
     Dosage: 2.5MG PER DAY
     Route: 048
     Dates: start: 20040308

REACTIONS (7)
  - CONTUSION [None]
  - CYANOSIS [None]
  - MUSCLE SPASMS [None]
  - OEDEMA PERIPHERAL [None]
  - PERIPHERAL VASCULAR DISORDER [None]
  - POST PROCEDURAL PAIN [None]
  - VARICOSE VEIN [None]
